FAERS Safety Report 9357661 (Version 1)
Quarter: 2013Q2

REPORT INFORMATION
  Report Type: Spontaneous
  Country: US (occurrence: US)
  Receive Date: 20130620
  Receipt Date: 20130620
  Transmission Date: 20140414
  Serious: Yes (Other)
  Sender: FDA-Public Use
  Company Number: US-PFIZER INC-2013183545

PATIENT
  Sex: Female

DRUGS (1)
  1. CHANTIX [Suspect]
     Dosage: UNK
     Dates: start: 2007

REACTIONS (5)
  - Multiple sclerosis [Unknown]
  - Paralysis [Not Recovered/Not Resolved]
  - Migraine [Not Recovered/Not Resolved]
  - Diplopia [Not Recovered/Not Resolved]
  - Muscular weakness [Not Recovered/Not Resolved]
